FAERS Safety Report 21625383 (Version 3)
Quarter: 2022Q4

REPORT INFORMATION
  Report Type: Spontaneous
  Country: US (occurrence: US)
  Receive Date: 20221122
  Receipt Date: 20221205
  Transmission Date: 20230113
  Serious: No
  Sender: FDA-Public Use
  Company Number: US-002147023-NVSC2022US262118

PATIENT
  Sex: Female

DRUGS (1)
  1. COSENTYX [Suspect]
     Active Substance: SECUKINUMAB
     Indication: Product used for unknown indication
     Dosage: 300 MG, QMO (SINCE 7 YEARS)
     Route: 065

REACTIONS (5)
  - Condition aggravated [Unknown]
  - Device defective [Unknown]
  - Needle issue [Unknown]
  - Product distribution issue [Unknown]
  - Incorrect dose administered [Unknown]
